FAERS Safety Report 9411860 (Version 2)
Quarter: 2013Q3

REPORT INFORMATION
  Report Type: Spontaneous
  Country: BR (occurrence: BR)
  Receive Date: 20130722
  Receipt Date: 20130821
  Transmission Date: 20140515
  Serious: Yes (Death)
  Sender: FDA-Public Use
  Company Number: PHHY2013BR077262

PATIENT
  Age: 76 Year
  Sex: Female

DRUGS (10)
  1. EXELON PATCH [Suspect]
     Indication: DEMENTIA ALZHEIMER^S TYPE
     Dosage: 9.5 MG, DAILY
     Route: 062
  2. SOTALOL [Concomitant]
     Indication: ARRHYTHMIA
     Dosage: 1 DF DAILY (HALF TABLET IN THE MORNING AND HALF AT NIGHT)
     Route: 048
  3. WARFARIN [Concomitant]
     Indication: ANTICOAGULANT THERAPY
     Dosage: UNK, DOSE VARIED AS PER RMI (LAST DOSE HALF TABLET 1 DAY AND 1TAB NEXT DAY)
     Route: 048
  4. OMEPRAZOLE [Concomitant]
     Indication: EPIGASTRIC DISCOMFORT
     Dosage: 2 DF DAILY (ONE TABLET IN THE MORNING AND ONE AT NIGHT)
     Route: 048
  5. METFORMIN [Concomitant]
     Indication: HYPERGLYCAEMIA
     Dosage: 2 DF DAILY (ONE TABLET IN LUNCH AND ONE IN DINNER)
     Route: 048
  6. HYDROCHLOROTHIAZIDE [Concomitant]
     Indication: POLYURIA
     Dosage: 1 TABLET IN MORNING
     Route: 048
  7. DIOVAN [Concomitant]
     Indication: HYPERTENSION
     Dosage: 1 DF IN THE MORNING
     Route: 048
  8. VITAMIN B [Concomitant]
     Dosage: 1 DF, DAILY
     Route: 048
  9. LEVOTHYROXINE [Concomitant]
     Indication: HYPOTHYROIDISM
     Dosage: 1 DF DAILY
     Route: 048
  10. PRISTIQ [Concomitant]
     Indication: DEMENTIA ALZHEIMER^S TYPE
     Dosage: 1 DF, DAILY

REACTIONS (2)
  - Infarction [Fatal]
  - Anaemia [Recovering/Resolving]
